FAERS Safety Report 15682884 (Version 1)
Quarter: 2018Q4

REPORT INFORMATION
  Report Type: Spontaneous
  Country: US (occurrence: US)
  Receive Date: 20181203
  Receipt Date: 20181203
  Transmission Date: 20190205
  Serious: No
  Sender: FDA-Public Use
  Company Number: US-BAYER-2018-221874

PATIENT
  Sex: Female

DRUGS (1)
  1. ALEVE [Suspect]
     Active Substance: NAPROXEN SODIUM
     Indication: MIGRAINE
     Route: 048

REACTIONS (3)
  - Product use in unapproved indication [Unknown]
  - Poor quality product administered [Unknown]
  - Dysgeusia [Unknown]
